FAERS Safety Report 9728333 (Version 8)
Quarter: 2015Q2

REPORT INFORMATION
  Report Type: Spontaneous
  Country: DE (occurrence: DE)
  Receive Date: 20131204
  Receipt Date: 20150505
  Transmission Date: 20150821
  Serious: Yes (Other)
  Sender: FDA-Public Use
  Company Number: DE-ROCHE-1310726

PATIENT
  Age: 80 Year
  Sex: Female

DRUGS (3)
  1. LUCENTIS [Suspect]
     Active Substance: RANIBIZUMAB
     Dosage: UNKNOWN DOSE REGULARLY EVERY THREE WEEKS ALTERNATELY INTO THE RIGHT AND LEFT EYE.
     Route: 050
  2. LUCENTIS [Suspect]
     Active Substance: RANIBIZUMAB
     Indication: NEOVASCULAR AGE-RELATED MACULAR DEGENERATION
     Route: 050
     Dates: start: 2012
  3. CORTISONE [Concomitant]
     Active Substance: CORTISONE\HYDROCORTISONE

REACTIONS (14)
  - Vitreous disorder [Recovered/Resolved]
  - Eye haemorrhage [Not Recovered/Not Resolved]
  - Neovascularisation [Not Recovered/Not Resolved]
  - Visual acuity reduced [Unknown]
  - Dizziness [Unknown]
  - Inappropriate schedule of drug administration [Unknown]
  - Epistaxis [Not Recovered/Not Resolved]
  - Influenza like illness [Unknown]
  - Ocular neoplasm [Not Recovered/Not Resolved]
  - Hypersensitivity [Not Recovered/Not Resolved]
  - Haemangioma of skin [Not Recovered/Not Resolved]
  - Cataract [Not Recovered/Not Resolved]
  - Visual impairment [Not Recovered/Not Resolved]
  - Conjunctival vascular disorder [Not Recovered/Not Resolved]

NARRATIVE: CASE EVENT DATE: 2012
